FAERS Safety Report 15736861 (Version 1)
Quarter: 2018Q4

REPORT INFORMATION
  Report Type: Spontaneous
  Country: JP (occurrence: JP)
  Receive Date: 20181218
  Receipt Date: 20181218
  Transmission Date: 20190205
  Serious: Yes (Hospitalization)
  Sender: FDA-Public Use
  Company Number: JP-VIFOR (INTERNATIONAL) INC.-VIT-2018-12358

PATIENT
  Age: 78 Year
  Sex: Female

DRUGS (2)
  1. MIRCERA [Suspect]
     Active Substance: METHOXY POLYETHYLENE GLYCOL-EPOETIN BETA
     Indication: NEPHROGENIC ANAEMIA
     Route: 058
  2. SAMSCA [Concomitant]
     Active Substance: TOLVAPTAN
     Route: 065

REACTIONS (2)
  - Hypoglycaemia [Not Recovered/Not Resolved]
  - Altered state of consciousness [Not Recovered/Not Resolved]
